FAERS Safety Report 13131534 (Version 1)
Quarter: 2017Q1

REPORT INFORMATION
  Report Type: Spontaneous
  Country: US (occurrence: US)
  Receive Date: 20170119
  Receipt Date: 20170119
  Transmission Date: 20170428
  Serious: Yes (Hospitalization, Other)
  Sender: FDA-Public Use
  Company Number: US-PROCTER+GAMBLE-GS17004200

PATIENT
  Age: 6 Month

DRUGS (1)
  1. VICKS VAPORUB [Suspect]
     Active Substance: CAMPHOR (SYNTHETIC)\EUCALYPTUS OIL\MENTHOL
     Indication: NASAL CONGESTION
     Dosage: PUT ON CHEST
     Route: 061

REACTIONS (2)
  - Pneumonia [Recovered/Resolved]
  - Drug administered to patient of inappropriate age [Unknown]
